FAERS Safety Report 14913684 (Version 2)
Quarter: 2018Q2

REPORT INFORMATION
  Report Type: Spontaneous
  Country: US (occurrence: US)
  Receive Date: 20180518
  Receipt Date: 20180523
  Transmission Date: 20180711
  Serious: Yes (Other)
  Sender: FDA-Public Use
  Company Number: US-PFIZER INC-2018200732

PATIENT
  Age: 13 Year
  Sex: Male
  Weight: 41.72 kg

DRUGS (5)
  1. DILANTIN [Suspect]
     Active Substance: PHENYTOIN
     Indication: SEIZURE
     Dosage: 350 MG, DAILY [250 MG IN THE MORNING AND 100 MG AT NIGHT]
     Route: 048
     Dates: start: 201802, end: 2018
  2. DILANTIN [Suspect]
     Active Substance: PHENYTOIN
     Dosage: UNK
     Dates: start: 201802
  3. DILANTIN [Suspect]
     Active Substance: PHENYTOIN
     Dosage: 400 MG, DAILY [200 MG IN THE MORNING AND 200MG AT NIGHT]
     Route: 048
     Dates: start: 2018, end: 2018
  4. STRATTERA [Concomitant]
     Active Substance: ATOMOXETINE HYDROCHLORIDE
     Indication: DISTURBANCE IN ATTENTION
     Dosage: 20 MG, 1X/DAY [IN THE MORNING]
     Route: 048
  5. DILANTIN [Suspect]
     Active Substance: PHENYTOIN
     Dosage: 500 MG, DAILY [TAKING 300 MG AT NIGHT TO HELP MORE DURING THE DAY AND 200 MG IN THE MORNING]
     Dates: start: 20180512

REACTIONS (4)
  - Hypersomnia [Unknown]
  - Seizure [Unknown]
  - Toxicity to various agents [Unknown]
  - Drug level decreased [Unknown]

NARRATIVE: CASE EVENT DATE: 201804
